FAERS Safety Report 23986576 (Version 1)
Quarter: 2024Q2

REPORT INFORMATION
  Report Type: Report from Study
  Country: US (occurrence: None)
  Receive Date: 20240618
  Receipt Date: 20240618
  Transmission Date: 20240716
  Serious: Yes (Hospitalization)
  Sender: FDA-Public Use
  Company Number: 2024A139383

PATIENT
  Sex: Female

DRUGS (12)
  1. TAGRISSO [Suspect]
     Active Substance: OSIMERTINIB
     Indication: Lung carcinoma cell type unspecified stage 0
     Route: 048
  2. DIALIAZEM HC [Concomitant]
     Dosage: TAB 120 MG
  3. ELIQUIS [Concomitant]
     Active Substance: APIXABAN
     Dosage: 5MG
  4. FAMOTIDINE [Concomitant]
     Active Substance: FAMOTIDINE
     Dosage: TAB 40MG
  5. FOLIC ACID [Concomitant]
     Active Substance: FOLIC ACID
     Dosage: TAB 80 MCG
  6. FUROSEMIDE [Concomitant]
     Active Substance: FUROSEMIDE
     Dosage: TAB 80 MG
  7. IRON [Concomitant]
     Active Substance: IRON
     Dosage: TAB325
  8. PANTOPRAZOLE [Concomitant]
     Active Substance: PANTOPRAZOLE
     Dosage: 40MG
  9. POTASSIUM [Concomitant]
     Active Substance: POTASSIUM
     Dosage: 99MG
  10. VITAMIN D [Concomitant]
     Active Substance: VITAMIN D NOS
     Dosage: LIQ 10 MCG/ML
  11. LORATADINE [Concomitant]
     Active Substance: LORATADINE
     Dosage: 10 MG
  12. METOPROLOL [Concomitant]
     Active Substance: METOPROLOL
     Dosage: TA2 200MG

REACTIONS (2)
  - Cardiac failure congestive [Not Recovered/Not Resolved]
  - Localised infection [Not Recovered/Not Resolved]
